FAERS Safety Report 8607783-5 (Version None)
Quarter: 2012Q3

REPORT INFORMATION
  Report Type: 
  Country: None (occurrence: None)
  Receive Date: 20120821
  Receipt Date: 20120817
  Transmission Date: 20120928
  Serious: Yes (Other)
  Sender: FDA-Public Use
  Company Number: PHEH2009US17987

PATIENT
  Sex: Male

DRUGS (40)
  1. ZOMETA [Suspect]
     Route: 042
  2. LEVAQUIN [Concomitant]
  3. SENOKOT                                 /UNK/ [Concomitant]
  4. ADVAIR [Concomitant]
  5. CIPROFLOXACIN [Concomitant]
  6. XELODA [Suspect]
     Indication: BREAST CANCER METASTATIC
  7. ARIXTRA [Concomitant]
  8. LAPATINIB [Concomitant]
  9. DURAGESIC-100 [Concomitant]
  10. PROTONIX [Concomitant]
  11. PREDNISONE [Concomitant]
  12. MEGACE [Concomitant]
  13. XOPENEX [Concomitant]
  14. ZOFRAN [Concomitant]
  15. GABAPENTIN [Concomitant]
  16. MIRALAX [Concomitant]
  17. COUMADIN [Concomitant]
  18. COMBIVENT [Concomitant]
  19. PREVACID [Concomitant]
  20. ZETIA [Concomitant]
  21. ROXANOL [Concomitant]
  22. VANCOMYCIN [Concomitant]
  23. FENTANYL CITRATE [Concomitant]
  24. XANAX [Concomitant]
  25. MARINOL [Concomitant]
  26. CYMBALTA [Concomitant]
  27. NEURONTIN [Concomitant]
  28. MORPHINE [Concomitant]
  29. MS CONTIN [Concomitant]
  30. ATIVAN [Concomitant]
  31. SPIRIVA [Concomitant]
  32. DECADRON [Concomitant]
  33. CHANTIX [Concomitant]
  34. GUAIFENESIN [Concomitant]
  35. TYLENOL [Concomitant]
  36. REGLAN [Concomitant]
  37. AMBIEN [Concomitant]
  38. HYDROCODONE BITARTRATE [Concomitant]
  39. TYKERB [Concomitant]
  40. CRESTOR [Concomitant]

REACTIONS (19)
  - SEBORRHOEIC KERATOSIS [None]
  - MASS [None]
  - DEFORMITY [None]
  - EMOTIONAL DISTRESS [None]
  - HYPOAESTHESIA [None]
  - OSTEONECROSIS OF JAW [None]
  - INJURY [None]
  - ACNE [None]
  - PAIN IN JAW [None]
  - INFECTION [None]
  - OVERDOSE [None]
  - PHYSICAL DISABILITY [None]
  - LEIOMYOSARCOMA [None]
  - RHABDOMYOSARCOMA [None]
  - PAIN [None]
  - ANXIETY [None]
  - SPINAL HAEMANGIOMA [None]
  - BONE NEOPLASM MALIGNANT [None]
  - SKIN LESION [None]
